FAERS Safety Report 6056181-X (Version None)
Quarter: 2009Q1

REPORT INFORMATION
  Report Type: 
  Country: None (occurrence: None)
  Receive Date: 20090123
  Receipt Date: 20090123
  Transmission Date: 20090719
  Serious: Yes (Death, Hospitalization)
  Sender: FDA-Public Use
  Company Number: None

PATIENT
  Sex: Male

DRUGS (11)
  1. REVLIMID [Suspect]
     Indication: MYELOFIBROSIS
     Dosage: 10MG DAILY ORALLY
     Route: 048
     Dates: start: 20080916, end: 20090117
  2. REVLIMID [Suspect]
  3. AVELOX [Concomitant]
  4. ALBUTEROL [Concomitant]
  5. SIMVASTATIN [Concomitant]
  6. BACTRIM DS [Concomitant]
  7. HYDROXYUREA [Concomitant]
  8. NOVOLIN N [Concomitant]
  9. METFORMIN [Concomitant]
  10. CARVEDILOL [Concomitant]
  11. ASPIRIN [Concomitant]

REACTIONS (17)
  - ANOREXIA [None]
  - ASTHENIA [None]
  - ATRIAL FIBRILLATION [None]
  - CHEST PAIN [None]
  - COUGH [None]
  - DISEASE PROGRESSION [None]
  - DYSPNOEA [None]
  - FATIGUE [None]
  - GENERAL PHYSICAL HEALTH DETERIORATION [None]
  - HYPOTENSION [None]
  - LYMPH GLAND INFECTION [None]
  - LYMPHADENOPATHY [None]
  - NAUSEA [None]
  - PNEUMONIA [None]
  - TOOTH INFECTION [None]
  - TROPONIN I INCREASED [None]
  - VOMITING [None]
